FAERS Safety Report 8279339 (Version 3)
Quarter: 2014Q1

REPORT INFORMATION
  Report Type: Spontaneous
  Country: US (occurrence: US)
  Receive Date: 20111208
  Receipt Date: 20140328
  Transmission Date: 20141002
  Serious: No
  Sender: FDA-Public Use
  Company Number: US-BAYER-201018984NA

PATIENT
  Age: 50 Year
  Sex: Female

DRUGS (2)
  1. CLIMARA [Suspect]
     Indication: HORMONE REPLACEMENT THERAPY
     Dosage: 50 MCG/24HR, UNK
     Route: 062
     Dates: start: 2002
  2. CLIMARA [Suspect]
     Indication: HORMONE REPLACEMENT THERAPY
     Dosage: UNK
     Dates: start: 2003

REACTIONS (9)
  - Hot flush [None]
  - Product adhesion issue [None]
  - Product shape issue [None]
  - Application site rash [None]
  - Night sweats [Not Recovered/Not Resolved]
  - Application site urticaria [Not Recovered/Not Resolved]
  - Application site rash [Not Recovered/Not Resolved]
  - Product formulation issue [None]
  - Application site burn [Not Recovered/Not Resolved]
